FAERS Safety Report 10213647 (Version 1)
Quarter: 2014Q2

REPORT INFORMATION
  Report Type: Spontaneous
  Country: US (occurrence: US)
  Receive Date: 20140603
  Receipt Date: 20140603
  Transmission Date: 20141212
  Serious: Yes (Other)
  Sender: FDA-Public Use
  Company Number: US-BEH-2014042952

PATIENT
  Sex: 0

DRUGS (1)
  1. CARIMUNE [Suspect]

REACTIONS (1)
  - Convulsion [Unknown]
